FAERS Safety Report 5524603-6 (Version None)
Quarter: 2007Q4

REPORT INFORMATION
  Report Type: 
  Country: None (occurrence: None)
  Receive Date: 20071123
  Receipt Date: 20071115
  Transmission Date: 20080405
  Serious: Yes (Hospitalization)
  Sender: FDA-Public Use
  Company Number: JP-BAYER-200710234BYL

PATIENT
  Age: 47 Year
  Sex: Male
  Weight: 63 kg

DRUGS (7)
  1. ASPIRIN [Suspect]
     Indication: CORONARY ARTERIAL STENT INSERTION
     Dosage: TOTAL DAILY DOSE: 100 MG  UNIT DOSE: 100 MG
     Route: 048
     Dates: start: 20070228, end: 20070328
  2. PANALDINE [Suspect]
     Indication: CORONARY ARTERIAL STENT INSERTION
     Dosage: TOTAL DAILY DOSE: 200 MG
     Route: 048
     Dates: start: 20070112, end: 20070201
  3. HEPARIN [Suspect]
     Indication: ANTICOAGULANT THERAPY
     Route: 041
     Dates: start: 20070205, end: 20070301
  4. HEPARIN [Suspect]
     Route: 041
     Dates: start: 20070329, end: 20070409
  5. CEFZON [Suspect]
     Indication: PNEUMONIA
     Dosage: TOTAL DAILY DOSE: 300 MG
     Route: 048
     Dates: start: 20070313, end: 20070317
  6. KAMAG G [Concomitant]
     Route: 048
  7. CILOSTAZOL [Concomitant]
     Indication: CORONARY ARTERIAL STENT INSERTION
     Dosage: TOTAL DAILY DOSE: 50 MG
     Route: 048
     Dates: start: 20070202, end: 20070205

REACTIONS (5)
  - BLOOD ALKALINE PHOSPHATASE INCREASED [None]
  - CHOLESTASIS [None]
  - GAMMA-GLUTAMYLTRANSFERASE INCREASED [None]
  - PYREXIA [None]
  - URTICARIA [None]
